FAERS Safety Report 6223320-7 (Version None)
Quarter: 2009Q2

REPORT INFORMATION
  Report Type: 
  Country: None (occurrence: None)
  Receive Date: 20090609
  Receipt Date: 20090529
  Transmission Date: 20091009
  Serious: Yes (Death, Other)
  Sender: FDA-Public Use
  Company Number: GXKR2009GB06385

PATIENT
  Age: 52 Year
  Sex: Male

DRUGS (2)
  1. MYCOPHENOLATE MOFETIL [Suspect]
     Indication: PROPHYLAXIS AGAINST TRANSPLANT REJECTION
     Dosage: 1 G, BID, UNKNOWN
  2. GLICLAZIDE (GLICLAZIDE) [Concomitant]

REACTIONS (8)
  - HERPES ZOSTER [None]
  - MYELOPATHY [None]
  - OPTIC NEUROPATHY [None]
  - PARALYSIS [None]
  - RESPIRATORY FAILURE [None]
  - SPINAL CORD DISORDER [None]
  - THROMBOCYTOPENIA [None]
  - VISUAL IMPAIRMENT [None]
